FAERS Safety Report 9939825 (Version 1)
Quarter: 2014Q1

REPORT INFORMATION
  Report Type: Report from Study
  Country: US (occurrence: US)
  Receive Date: 20140303
  Receipt Date: 20140303
  Transmission Date: 20141002
  Serious: No
  Sender: FDA-Public Use
  Company Number: US-ABBVIE-13P-163-1036309-00

PATIENT
  Age: 34 Year
  Sex: Female

DRUGS (4)
  1. HUMIRA [Suspect]
     Indication: CROHN^S DISEASE
     Dates: start: 20121216
  2. HUMIRA [Suspect]
     Dates: start: 20121231
  3. HUMIRA [Suspect]
  4. VITAMIN D3 [Concomitant]
     Indication: PROPHYLAXIS
     Dosage: 2000 U DAILY
     Dates: start: 20130113

REACTIONS (1)
  - Inappropriate schedule of drug administration [Recovered/Resolved]
